FAERS Safety Report 17773465 (Version 2)
Quarter: 2021Q3

REPORT INFORMATION
  Report Type: Report from Study
  Country: NL (occurrence: NL)
  Receive Date: 20200512
  Receipt Date: 20210718
  Transmission Date: 20211014
  Serious: Yes (Other)
  Sender: FDA-Public Use
  Company Number: NVSC2020NL124311

PATIENT
  Age: 71 Year
  Sex: Female

DRUGS (3)
  1. SANDOSTATINE LAR [Suspect]
     Active Substance: OCTREOTIDE ACETATE
  2. SANDOSTATINE LAR [Suspect]
     Active Substance: OCTREOTIDE ACETATE
  3. SANDOSTATINE LAR [Suspect]
     Active Substance: OCTREOTIDE ACETATE
     Indication: NEUROENDOCRINE TUMOUR
     Dosage: 1 DF, QMO (1.00 X PER 4 WEEKS)
     Route: 030

REACTIONS (3)
  - Second primary malignancy [Unknown]
  - Metastases to liver [Not Recovered/Not Resolved]
  - Abdominal neoplasm [Unknown]

NARRATIVE: CASE EVENT DATE: 20210621
